FAERS Safety Report 4821597-3 (Version None)
Quarter: 2005Q4

REPORT INFORMATION
  Report Type: 
  Country: None (occurrence: None)
  Receive Date: 20051107
  Receipt Date: 20051014
  Transmission Date: 20060501
  Serious: Yes (Other)
  Sender: FDA-Public Use
  Company Number: PHRM2005FR02747

PATIENT
  Sex: Male

DRUGS (1)
  1. STALEVO 100 [Suspect]
     Route: 048

REACTIONS (2)
  - COLITIS [None]
  - DIARRHOEA [None]
